FAERS Safety Report 19804168 (Version 1)
Quarter: 2021Q3

REPORT INFORMATION
  Report Type: Spontaneous
  Country: US (occurrence: US)
  Receive Date: 20210908
  Receipt Date: 20210908
  Transmission Date: 20211014
  Serious: No
  Sender: FDA-Public Use
  Company Number: US-FARMAPROD-202106-1007

PATIENT
  Sex: Female

DRUGS (17)
  1. REFRESH LACRI?LUBE [Concomitant]
     Active Substance: MINERAL OIL\PETROLATUM
  2. DOXYCYCLINE HYCLATE. [Concomitant]
     Active Substance: DOXYCYCLINE HYCLATE
  3. REFRESH CELLUVISC [Concomitant]
     Active Substance: CARBOXYMETHYLCELLULOSE SODIUM
     Dosage: DROPER GEL
  4. MAG?OXIDE [Concomitant]
     Active Substance: MAGNESIUM OXIDE
  5. OXERVATE [Suspect]
     Active Substance: CENEGERMIN-BKBJ
     Indication: NEUROTROPHIC KERATOPATHY
     Route: 047
     Dates: start: 20210609
  6. SPRYCEL [Concomitant]
     Active Substance: DASATINIB
  7. KLOR?CON [Concomitant]
     Active Substance: POTASSIUM CHLORIDE
  8. SIROLIMUS. [Concomitant]
     Active Substance: SIROLIMUS
  9. FLUCONAZOLE. [Concomitant]
     Active Substance: FLUCONAZOLE
  10. ACYCLOVIR. [Concomitant]
     Active Substance: ACYCLOVIR
  11. EFFEXOR [Concomitant]
     Active Substance: VENLAFAXINE HYDROCHLORIDE
     Dosage: EXTENDED RELEASE CAPSULE
  12. PENICILLIN V POTASSIUM. [Concomitant]
     Active Substance: PENICILLIN V POTASSIUM
  13. METOPROLOL SUCCINATE. [Concomitant]
     Active Substance: METOPROLOL SUCCINATE
  14. JAKAFI [Concomitant]
     Active Substance: RUXOLITINIB
  15. CYMBALTA [Concomitant]
     Active Substance: DULOXETINE HYDROCHLORIDE
  16. XIIDRA [Concomitant]
     Active Substance: LIFITEGRAST
     Dosage: DROPERETTE
  17. ELIQUIS [Concomitant]
     Active Substance: APIXABAN

REACTIONS (2)
  - Ocular discomfort [Unknown]
  - Eye pain [Unknown]
